FAERS Safety Report 23364029 (Version 1)
Quarter: 2024Q1

REPORT INFORMATION
  Report Type: Report from Study
  Country: US (occurrence: US)
  Receive Date: 20240104
  Receipt Date: 20240104
  Transmission Date: 20240410
  Serious: Yes (Hospitalization, Other)
  Sender: FDA-Public Use
  Company Number: US-ABBVIE-5541283

PATIENT
  Age: 55 Year
  Sex: Female
  Weight: 65 kg

DRUGS (9)
  1. HUMIRA [Suspect]
     Active Substance: ADALIMUMAB
     Indication: Crohn^s disease
     Dosage: FORM STRENGTH: 40 MILLIGRAM?CITRATE FREE
     Route: 058
     Dates: start: 20230220, end: 20231127
  2. EVENITY [Concomitant]
     Active Substance: ROMOSOZUMAB-AQQG
     Indication: Bone disorder
     Dosage: FIRST ADMIN DATE WAS AUG 2023
  3. MENAQUINONE 6 [Concomitant]
     Active Substance: MENAQUINONE 6
     Indication: Vitamin supplementation
  4. VITAMIN B COMPLEX [Concomitant]
     Active Substance: CYANOCOBALAMIN\DEXPANTHENOL\NIACINAMIDE\PYRIDOXINE HYDROCHLORIDE\RIBOFLAVIN 5^-PHOSPHATE SODIUM\THIA
     Indication: Vitamin supplementation
  5. VITAMIN K1 [Concomitant]
     Active Substance: PHYTONADIONE
     Indication: Vitamin supplementation
  6. ASPIRIN [Concomitant]
     Active Substance: ASPIRIN
     Indication: Thrombosis
     Dosage: LAST ADMIN DATE WAS NOV 2023
  7. CALCIUM [Concomitant]
     Active Substance: CALCIUM
     Indication: Mineral supplementation
     Dosage: FORM STRENGTH: 1200 MILLIGRAM
  8. TAMOXIFEN [Concomitant]
     Active Substance: TAMOXIFEN
     Indication: Postoperative care
     Dosage: LAST ADMIN DATE- NOV 2023?FREQUENCY TEXT: DAILY
  9. VITAMIN D3 [Concomitant]
     Active Substance: CHOLECALCIFEROL
     Indication: Vitamin supplementation
     Dosage: FORM STRENGTH: 10000 ?FORM STRENGTH UNITS: IU (INTERNATIONAL UNIT)

REACTIONS (7)
  - Spondylolisthesis [Recovering/Resolving]
  - Bone loss [Recovering/Resolving]
  - Back pain [Recovered/Resolved]
  - Movement disorder [Recovered/Resolved]
  - Procedural pain [Recovering/Resolving]
  - Dislocation of vertebra [Recovering/Resolving]
  - Spinal osteoarthritis [Recovering/Resolving]

NARRATIVE: CASE EVENT DATE: 20230301
